FAERS Safety Report 4529137-3 (Version None)
Quarter: 2004Q4

REPORT INFORMATION
  Report Type: 
  Country: None (occurrence: None)
  Receive Date: 20041214
  Receipt Date: 20041201
  Transmission Date: 20050328
  Serious: Yes (Disabling)
  Sender: FDA-Public Use
  Company Number: 2004101453

PATIENT
  Age: 84 Year
  Sex: Female

DRUGS (8)
  1. CELEBREX [Suspect]
     Indication: TENDONITIS
     Dosage: 200 MG (100 MG, 2 IN 1 D), ORAL
     Route: 048
     Dates: start: 20040922, end: 20041006
  2. ACETAMINOPHEN [Concomitant]
  3. CODEINE (CODEINE) [Concomitant]
  4. ALENDRONATE SODIUM [Concomitant]
  5. CALCIUM (CALCIUM) [Concomitant]
  6. HYDROCHLOROTHIAZIDE [Concomitant]
  7. ENALAPRIL MALEATE [Concomitant]
  8. ERGOCALCIFEROL (ERGOCALCIFEROL) [Concomitant]

REACTIONS (1)
  - CEREBROVASCULAR ACCIDENT [None]
